FAERS Safety Report 19659835 (Version 1)
Quarter: 2021Q3

REPORT INFORMATION
  Report Type: Spontaneous
  Country: US (occurrence: US)
  Receive Date: 20210804
  Receipt Date: 20210804
  Transmission Date: 20211014
  Serious: No
  Sender: FDA-Public Use
  Company Number: None

PATIENT
  Age: 70 Year
  Sex: Male

DRUGS (1)
  1. BACLOFEN (BACLOFEN 5MG TAB) [Suspect]
     Active Substance: BACLOFEN
     Indication: PAIN
     Dates: start: 20210521, end: 20210524

REACTIONS (4)
  - Delirium [None]
  - Dialysis [None]
  - Confusional state [None]
  - Myoclonus [None]

NARRATIVE: CASE EVENT DATE: 20210524
